FAERS Safety Report 15947743 (Version 1)
Quarter: 2019Q1

REPORT INFORMATION
  Report Type: Spontaneous
  Country: US (occurrence: US)
  Receive Date: 20190208
  Receipt Date: 20190208
  Transmission Date: 20190417
  Serious: No
  Sender: FDA-Public Use
  Company Number: None

PATIENT
  Age: 59 Year

DRUGS (2)
  1. FLU SHOT [Suspect]
     Active Substance: INFLUENZA VIRUS VACCINE
     Indication: PSORIASIS
     Dosage: ?          OTHER FREQUENCY:EVERY 4 WKS;?
     Route: 058
     Dates: start: 201712
  2. TALTZ [Suspect]
     Active Substance: IXEKIZUMAB

REACTIONS (3)
  - Nasopharyngitis [None]
  - Pain [None]
  - Chest pain [None]
